FAERS Safety Report 23372336 (Version 3)
Quarter: 2024Q1

REPORT INFORMATION
  Report Type: Report from Study
  Country: GB (occurrence: GB)
  Receive Date: 20240105
  Receipt Date: 20240111
  Transmission Date: 20240410
  Serious: Yes (Other)
  Sender: FDA-Public Use
  Company Number: GB-SANDOZ-SDZ2023GB054451

PATIENT
  Sex: Male

DRUGS (1)
  1. HYRIMOZ [Suspect]
     Active Substance: ADALIMUMAB-ADAZ
     Indication: Ankylosing spondylitis
     Dosage: 40 MG, EOW
     Route: 058
     Dates: start: 20231012

REACTIONS (7)
  - Lower respiratory tract infection [Unknown]
  - Malaise [Recovered/Resolved]
  - Malaise [Recovering/Resolving]
  - Arthralgia [Unknown]
  - Nasopharyngitis [Recovered/Resolved]
  - Sinusitis [Recovered/Resolved]
  - Product dose omission issue [Unknown]
